FAERS Safety Report 4921513-X (Version None)
Quarter: 2006Q1

REPORT INFORMATION
  Report Type: 
  Country: None (occurrence: None)
  Receive Date: 20060221
  Receipt Date: 20060208
  Transmission Date: 20060701
  Serious: Yes (Hospitalization)
  Sender: FDA-Public Use
  Company Number: 2006020774

PATIENT
  Age: 56 Year
  Sex: Male
  Weight: 101 kg

DRUGS (1)
  1. SUTENT [Suspect]
     Indication: RENAL CELL CARCINOMA STAGE UNSPECIFIED
     Dosage: 37.5 MG (DAILY), ORAL
     Route: 048
     Dates: start: 20060112, end: 20060208

REACTIONS (2)
  - HYPERTENSION [None]
  - NEPHROTIC SYNDROME [None]
